FAERS Safety Report 6495528-7 (Version None)
Quarter: 2009Q4

REPORT INFORMATION
  Report Type: 
  Country: None (occurrence: None)
  Receive Date: 20091214
  Receipt Date: 20090707
  Transmission Date: 20100525
  Serious: No
  Sender: FDA-Public Use
  Company Number: US-BRISTOL-MYERS SQUIBB COMPANY-14693568

PATIENT
  Age: 15 Year
  Sex: Male
  Weight: 69 kg

DRUGS (1)
  1. ABILIFY [Suspect]
     Indication: BIPOLAR DISORDER
     Dosage: WAS PRESCRIBED ABILIFY 2MG ON  02JUL2009
     Dates: start: 20090702

REACTIONS (5)
  - AGGRESSION [None]
  - BLEPHAROSPASM [None]
  - CHEST PAIN [None]
  - FATIGUE [None]
  - MEDICATION ERROR [None]
